FAERS Safety Report 8372507-6 (Version None)
Quarter: 2012Q2

REPORT INFORMATION
  Report Type: 
  Country: None (occurrence: None)
  Receive Date: 20120521
  Receipt Date: 20120512
  Transmission Date: 20120825
  Serious: Yes (Other)
  Sender: FDA-Public Use
  Company Number: PHHY2012BR041176

PATIENT
  Sex: Male

DRUGS (1)
  1. FORMOTEROL FUMARATE [Suspect]
     Dosage: UNK UKN, UNK

REACTIONS (6)
  - DYSPNOEA [None]
  - FATIGUE [None]
  - ASTHMA [None]
  - BRONCHITIS [None]
  - MALAISE [None]
  - EMPHYSEMA [None]
